FAERS Safety Report 7943930-6 (Version None)
Quarter: 2011Q4

REPORT INFORMATION
  Report Type: 
  Country: None (occurrence: None)
  Receive Date: 20111128
  Receipt Date: 20111118
  Transmission Date: 20120403
  Serious: Yes (Hospitalization, Other)
  Sender: FDA-Public Use
  Company Number: US-ASTRAZENECA-2009UW03041

PATIENT
  Age: 65 Year
  Sex: Female

DRUGS (16)
  1. CRESTOR [Suspect]
     Route: 048
     Dates: start: 20030101
  2. LIPITOR [Concomitant]
  3. OMEGA FATTY 3 [Concomitant]
  4. VITAMIN D [Concomitant]
  5. BAYCOL [Concomitant]
  6. CRESTOR [Suspect]
     Route: 048
     Dates: start: 20061219
  7. STATIN MEDS [Concomitant]
  8. FIORICET [Concomitant]
  9. NEXIUM [Suspect]
     Route: 048
  10. TOPROL-XL [Suspect]
     Dosage: 25 - 50 DAILY
     Route: 048
  11. CRESTOR [Suspect]
     Dosage: 20 MG ON TUESDAYS AND THURSDAYS
     Route: 048
     Dates: start: 20091001
  12. HYDROCHLOROTHIAZIDE [Concomitant]
     Dosage: 25-50 DAILY
  13. OXYCODONE HCL AND ACETAMINOPHEN [Concomitant]
  14. CRESTOR [Suspect]
     Route: 048
     Dates: start: 20091001
  15. ASPIRIN [Concomitant]
  16. PLAVIX [Concomitant]

REACTIONS (17)
  - VIRAL INFECTION [None]
  - ASTHMA [None]
  - MUSCLE SPASMS [None]
  - LIVER DISORDER [None]
  - PAIN [None]
  - FALL [None]
  - JOINT INJURY [None]
  - MIGRAINE [None]
  - RENAL IMPAIRMENT [None]
  - OSTEOARTHRITIS [None]
  - RENAL ARTERY STENOSIS [None]
  - BLOOD PRESSURE INADEQUATELY CONTROLLED [None]
  - BRONCHITIS [None]
  - MALAISE [None]
  - BLOOD POTASSIUM DECREASED [None]
  - OSTEITIS DEFORMANS [None]
  - HEADACHE [None]
